FAERS Safety Report 5447050-4 (Version None)
Quarter: 2007Q3

REPORT INFORMATION
  Report Type: 
  Country: None (occurrence: None)
  Receive Date: 20070801
  Receipt Date: 20070618
  Transmission Date: 20080115
  Serious: Yes (Hospitalization)
  Sender: FDA-Public Use
  Company Number: 156446USA

PATIENT
  Sex: Female
  Weight: 65.7716 kg

DRUGS (3)
  1. SALBUTAMOL SULFATE INHALATON, 0.09 MG (SALBUTAMOL) [Suspect]
     Indication: ASTHMA
     Dosage: 2 PUFFS PRN (4 IN 3 D), RESPIRATORY
     Route: 055
     Dates: start: 20070101
  2. PROPRANOLOL [Concomitant]
  3. NITROPURANTOIN [Concomitant]

REACTIONS (5)
  - ASTHMA [None]
  - DRUG INEFFECTIVE [None]
  - DYSPNOEA [None]
  - FALL [None]
  - SYNCOPE [None]
